FAERS Safety Report 9675495 (Version 6)
Quarter: 2014Q3

REPORT INFORMATION
  Report Type: Spontaneous
  Country: US (occurrence: US)
  Receive Date: 20131107
  Receipt Date: 20140820
  Transmission Date: 20150326
  Serious: Yes (Hospitalization, Other)
  Sender: FDA-Public Use
  Company Number: US-BAYER-2013-134568

PATIENT
  Age: 30 Year
  Sex: Female
  Weight: 57 kg

DRUGS (2)
  1. MIRENA [Suspect]
     Active Substance: LEVONORGESTREL
     Indication: CONTRACEPTION
     Dosage: 20 MCG/24HR, CONT
     Route: 015
     Dates: start: 20080721, end: 200909
  2. MIRENA [Suspect]
     Active Substance: LEVONORGESTREL
     Indication: CONTRACEPTION
     Dosage: 20 MCG/24HR, CONT
     Route: 015
     Dates: start: 20100928, end: 20111202

REACTIONS (15)
  - Uterine perforation [None]
  - Ovarian cyst ruptured [None]
  - Fear of disease [None]
  - Post procedural discomfort [None]
  - Pain [None]
  - Injury [None]
  - Device breakage [None]
  - Genital haemorrhage [None]
  - Anxiety [None]
  - Device difficult to use [None]
  - Medical device pain [None]
  - Device issue [None]
  - Device use error [None]
  - Gallbladder injury [None]
  - Mental disorder [None]

NARRATIVE: CASE EVENT DATE: 201110
